FAERS Safety Report 10083232 (Version 1)
Quarter: 2014Q2

REPORT INFORMATION
  Report Type: Spontaneous
  Country: US (occurrence: None)
  Receive Date: 20140415
  Receipt Date: 20140415
  Transmission Date: 20141212
  Serious: Yes (Disabling)
  Sender: FDA-Public Use
  Company Number: None

PATIENT
  Age: 39 Year
  Sex: Female
  Weight: 65.77 kg

DRUGS (2)
  1. PRILOSEC [Suspect]
     Indication: GASTROOESOPHAGEAL REFLUX DISEASE
     Route: 048
  2. PRILOSEC [Suspect]
     Indication: GASTRIC DISORDER
     Route: 048

REACTIONS (6)
  - Yawning [None]
  - Hyperchlorhydria [None]
  - Dyspnoea [None]
  - Sensation of foreign body [None]
  - Abdominal discomfort [None]
  - Product quality issue [None]
